FAERS Safety Report 5809365-7 (Version None)
Quarter: 2008Q3

REPORT INFORMATION
  Report Type: 
  Country: None (occurrence: None)
  Receive Date: 20080714
  Receipt Date: 20080703
  Transmission Date: 20090109
  Serious: Yes (Other)
  Sender: FDA-Public Use
  Company Number: PHHY2008BR13150

PATIENT
  Age: 9 Year
  Sex: Male

DRUGS (1)
  1. RITALIN [Suspect]
     Indication: PSYCHOMOTOR HYPERACTIVITY
     Dosage: 10MG DAILY
     Route: 048
     Dates: start: 20080407, end: 20080704

REACTIONS (2)
  - FACIAL PALSY [None]
  - PERIPHERAL PARALYSIS [None]
